FAERS Safety Report 5518223-7 (Version None)
Quarter: 2007Q4

REPORT INFORMATION
  Report Type: 
  Country: None (occurrence: None)
  Receive Date: 20071115
  Receipt Date: 20071115
  Transmission Date: 20080405
  Serious: Yes (Other)
  Sender: FDA-Public Use
  Company Number: A0694639A

PATIENT
  Age: 35 Year
  Sex: Female

DRUGS (2)
  1. ALLI [Suspect]
     Dates: start: 20070901, end: 20070901
  2. BIRTH CONTROL [Concomitant]

REACTIONS (3)
  - BACK PAIN [None]
  - METRORRHAGIA [None]
  - VAGINAL HAEMORRHAGE [None]
